FAERS Safety Report 8963974 (Version 2)
Quarter: 2013Q1

REPORT INFORMATION
  Report Type: Spontaneous
  Country: AR (occurrence: AR)
  Receive Date: 20121213
  Receipt Date: 20130204
  Transmission Date: 20140127
  Serious: Yes (Hospitalization, Other)
  Sender: FDA-Public Use
  Company Number: PHHY2012AR114815

PATIENT
  Sex: Female

DRUGS (1)
  1. DIOVAN [Suspect]
     Indication: HYPERTENSION
     Dosage: 160 MG, QD
     Route: 048

REACTIONS (9)
  - Diverticulitis [Unknown]
  - Polymyalgia rheumatica [Unknown]
  - Asthma [Unknown]
  - Pelvic abscess [Unknown]
  - Stress [Unknown]
  - Red blood cell count increased [Unknown]
  - Sleep disorder [Unknown]
  - Tachycardia [Unknown]
  - Palpitations [Unknown]
